FAERS Safety Report 6516650-2 (Version None)
Quarter: 2009Q4

REPORT INFORMATION
  Report Type: 
  Country: None (occurrence: None)
  Receive Date: 20091223
  Receipt Date: 20091217
  Transmission Date: 20100525
  Serious: Yes (Life-Threatening)
  Sender: FDA-Public Use
  Company Number: KR-MERCK-0912KOR00026

PATIENT
  Sex: Male

DRUGS (2)
  1. COSOPT [Suspect]
     Indication: GLAUCOMA
     Route: 047
  2. NITROGLYCERIN [Concomitant]
     Indication: PRINZMETAL ANGINA
     Route: 065
     Dates: start: 20060101

REACTIONS (1)
  - PRINZMETAL ANGINA [None]
